FAERS Safety Report 15023855 (Version 1)
Quarter: 2018Q2

REPORT INFORMATION
  Report Type: Report from Study
  Country: US (occurrence: US)
  Receive Date: 20180618
  Receipt Date: 20180618
  Transmission Date: 20180711
  Serious: Yes (Other)
  Sender: FDA-Public Use
  Company Number: US-MALLINCKRODT-T201800631

PATIENT
  Sex: Female

DRUGS (2)
  1. REPOSITORY CORTICOTROPIN INJECTION [Suspect]
     Active Substance: CORTICOTROPIN
     Indication: UVEITIS
     Dosage: 80 UNITS / 1 ML 2 TIMES PER WEEK MONDAY/THURSDAY
     Route: 058
     Dates: start: 20171106, end: 20180507
  2. REPOSITORY CORTICOTROPIN INJECTION [Suspect]
     Active Substance: CORTICOTROPIN
     Indication: DRY EYE

REACTIONS (3)
  - Injection site discolouration [Unknown]
  - Blood corticotrophin increased [Unknown]
  - Cortisol increased [Unknown]
